FAERS Safety Report 4444067-3 (Version None)
Quarter: 2004Q3

REPORT INFORMATION
  Report Type: 
  Country: None (occurrence: None)
  Receive Date: 20040729
  Receipt Date: 20031212
  Transmission Date: 20050211
  Serious: Yes (Hospitalization)
  Sender: FDA-Public Use
  Company Number: US-JNJFOC-20031203149

PATIENT
  Age: 14 Year
  Sex: Male

DRUGS (3)
  1. RISPERDAL [Suspect]
     Indication: AGGRESSION
     Dosage: 3 MG 1 IN 1 DAY ORAL
     Route: 048
     Dates: end: 20031212
  2. ALBUTEROL [Concomitant]
  3. DEPAKOTE [Concomitant]

REACTIONS (1)
  - ANAPHYLACTIC SHOCK [None]
